FAERS Safety Report 23665422 (Version 1)
Quarter: 2024Q1

REPORT INFORMATION
  Report Type: Report from Study
  Country: US (occurrence: US)
  Receive Date: 20240323
  Receipt Date: 20240323
  Transmission Date: 20240410
  Serious: Yes (Other)
  Sender: FDA-Public Use
  Company Number: US-ABBVIE-5688521

PATIENT
  Sex: Female

DRUGS (1)
  1. SKYRIZI [Suspect]
     Active Substance: RISANKIZUMAB-RZAA
     Indication: Crohn^s disease
     Route: 058
     Dates: start: 20231030

REACTIONS (8)
  - Loss of consciousness [Unknown]
  - Dizziness [Unknown]
  - Vision blurred [Unknown]
  - Feeling hot [Unknown]
  - Nausea [Unknown]
  - Tremor [Unknown]
  - Dyspnoea [Unknown]
  - Fatigue [Unknown]
